FAERS Safety Report 13260621 (Version 2)
Quarter: 2017Q1

REPORT INFORMATION
  Report Type: Spontaneous
  Country: JP (occurrence: JP)
  Receive Date: 20170222
  Receipt Date: 20170308
  Transmission Date: 20170428
  Serious: Yes (Hospitalization, Other)
  Sender: FDA-Public Use
  Company Number: JP-ASTRAZENECA-2017SE19236

PATIENT
  Age: 56 Year
  Sex: Male

DRUGS (6)
  1. DEPAS [Concomitant]
     Active Substance: ETIZOLAM
     Route: 048
     Dates: end: 20170214
  2. CYMBALTA [Concomitant]
     Active Substance: DULOXETINE HYDROCHLORIDE
     Route: 048
     Dates: end: 20170214
  3. SEROQUEL [Suspect]
     Active Substance: QUETIAPINE FUMARATE
     Indication: PRODUCT USED FOR UNKNOWN INDICATION
     Route: 048
  4. SEROQUEL [Suspect]
     Active Substance: QUETIAPINE FUMARATE
     Indication: PRODUCT USED FOR UNKNOWN INDICATION
     Dosage: 11200.0MG ONCE/SINGLE ADMINISTRATION
     Route: 048
     Dates: start: 20170214, end: 20170214
  5. CONTOMIN [Concomitant]
     Active Substance: CHLORPROMAZINE
     Route: 048
     Dates: end: 20170214
  6. ROHYPNOL [Concomitant]
     Active Substance: FLUNITRAZEPAM
     Route: 048
     Dates: end: 20170214

REACTIONS (5)
  - Suicidal ideation [Unknown]
  - Somnolence [Not Recovered/Not Resolved]
  - Intentional product misuse [Unknown]
  - Suicide attempt [Not Recovered/Not Resolved]
  - Intentional overdose [Unknown]

NARRATIVE: CASE EVENT DATE: 20170214
